FAERS Safety Report 7546785-7 (Version None)
Quarter: 2011Q2

REPORT INFORMATION
  Report Type: 
  Country: None (occurrence: None)
  Receive Date: 20110614
  Receipt Date: 20110531
  Transmission Date: 20111010
  Serious: Yes (Hospitalization)
  Sender: FDA-Public Use
  Company Number: CZ-ROCHE-755797

PATIENT
  Sex: Female

DRUGS (4)
  1. MYCOPHENOLATE MEFETIL [Suspect]
     Dosage: DOSE REDUCED
     Route: 048
  2. BELATACEPT [Suspect]
     Route: 042
     Dates: start: 20070309
  3. MYCOPHENOLATE MEFETIL [Suspect]
     Route: 048
     Dates: start: 20070309
  4. BELATACEPT [Suspect]
     Dosage: DOSE REDUCED
     Route: 042

REACTIONS (3)
  - ORAL FUNGAL INFECTION [None]
  - KIDNEY TRANSPLANT REJECTION [None]
  - URINARY TRACT INFECTION [None]
